FAERS Safety Report 13819019 (Version 1)
Quarter: 2017Q3

REPORT INFORMATION
  Report Type: Spontaneous
  Country: JP (occurrence: JP)
  Receive Date: 20170801
  Receipt Date: 20170801
  Transmission Date: 20171127
  Serious: Yes (Death)
  Sender: FDA-Public Use
  Company Number: JP-EISAI MEDICAL RESEARCH-EC-2017-029790

PATIENT
  Age: 83 Year
  Sex: Female
  Weight: 46 kg

DRUGS (35)
  1. LENVIMA [Suspect]
     Active Substance: LENVATINIB
     Route: 048
     Dates: start: 20160326, end: 20160330
  2. LENVIMA [Suspect]
     Active Substance: LENVATINIB
     Route: 048
     Dates: start: 20160611, end: 20160614
  3. LENVIMA [Suspect]
     Active Substance: LENVATINIB
     Route: 048
     Dates: start: 20160811, end: 20160816
  4. LENVIMA [Suspect]
     Active Substance: LENVATINIB
     Dosage: UNKNOWN
     Route: 048
     Dates: start: 20170111, end: 20170330
  5. NEXAVAR [Concomitant]
     Active Substance: SORAFENIB
     Indication: PRODUCT USED FOR UNKNOWN INDICATION
     Dosage: UNKNOWN
     Dates: start: 20161018
  6. LENVIMA [Suspect]
     Active Substance: LENVATINIB
     Indication: ANAPLASTIC THYROID CANCER
     Route: 048
     Dates: start: 20150911, end: 20151008
  7. LENVIMA [Suspect]
     Active Substance: LENVATINIB
     Route: 048
     Dates: start: 20160305, end: 20160310
  8. LEVOTHYROXINE SODIUM HYDRATE [Concomitant]
     Active Substance: LEVOTHYROXINE SODIUM
     Indication: PRODUCT USED FOR UNKNOWN INDICATION
     Dosage: UNKNOWN
  9. LENVIMA [Suspect]
     Active Substance: LENVATINIB
     Indication: PAPILLARY THYROID CANCER
     Route: 048
     Dates: start: 20150813, end: 20150908
  10. LENVIMA [Suspect]
     Active Substance: LENVATINIB
     Route: 048
     Dates: start: 20151213, end: 20151217
  11. LENVIMA [Suspect]
     Active Substance: LENVATINIB
     Route: 048
     Dates: start: 20160424, end: 20160504
  12. LENVIMA [Suspect]
     Active Substance: LENVATINIB
     Dosage: ALTERNATING DOSE AT 8 MG/DAY AND 4 MG/DAY
     Route: 048
     Dates: start: 20160527, end: 20160601
  13. LENVIMA [Suspect]
     Active Substance: LENVATINIB
     Route: 048
     Dates: start: 20151016, end: 20151112
  14. LENVIMA [Suspect]
     Active Substance: LENVATINIB
     Route: 048
     Dates: start: 20151120, end: 20151126
  15. LENVIMA [Suspect]
     Active Substance: LENVATINIB
     Route: 048
     Dates: start: 20151130, end: 20151203
  16. LENVIMA [Suspect]
     Active Substance: LENVATINIB
     Dosage: ALTERNATING DOSE AT 8 MG/DAY AND 4 MG/DAY
     Route: 048
     Dates: start: 20160513, end: 20160518
  17. LENVIMA [Suspect]
     Active Substance: LENVATINIB
     Dosage: ALTERNATING DOSE AT 8 MG/DAY AND 4 MG/DAY
     Route: 048
     Dates: start: 20160520, end: 20160525
  18. LENVIMA [Suspect]
     Active Substance: LENVATINIB
     Route: 048
     Dates: start: 20160728, end: 20160802
  19. LENVIMA [Suspect]
     Active Substance: LENVATINIB
     Route: 048
     Dates: start: 20151207, end: 20151210
  20. LENVIMA [Suspect]
     Active Substance: LENVATINIB
     Route: 048
     Dates: start: 20160104, end: 20160302
  21. LENVIMA [Suspect]
     Active Substance: LENVATINIB
     Route: 048
     Dates: start: 20160412, end: 20160415
  22. LENVIMA [Suspect]
     Active Substance: LENVATINIB
     Route: 048
     Dates: start: 20160616, end: 20160621
  23. LENVIMA [Suspect]
     Active Substance: LENVATINIB
     Dosage: ALTERNATING DOSE AT 8 MG/DAY AND 4 MG/DAY
     Route: 048
     Dates: start: 20151229, end: 20160103
  24. LENVIMA [Suspect]
     Active Substance: LENVATINIB
     Route: 048
     Dates: start: 20160406, end: 20160410
  25. LENVIMA [Suspect]
     Active Substance: LENVATINIB
     Route: 048
     Dates: start: 20160630, end: 20160706
  26. LENVIMA [Suspect]
     Active Substance: LENVATINIB
     Route: 048
     Dates: start: 20160715, end: 20160726
  27. LENVIMA [Suspect]
     Active Substance: LENVATINIB
     Route: 048
     Dates: start: 20160804, end: 20160809
  28. LENVIMA [Suspect]
     Active Substance: LENVATINIB
     Dosage: ALTERNATING DOSE AT 8 MG/DAY AND 4 MG/DAY
     Route: 048
     Dates: start: 20160603, end: 20160608
  29. LENVIMA [Suspect]
     Active Substance: LENVATINIB
     Route: 048
     Dates: start: 20160623, end: 20160628
  30. LENVIMA [Suspect]
     Active Substance: LENVATINIB
     Route: 048
     Dates: start: 20160708, end: 20160713
  31. PACLITAXEL. [Concomitant]
     Active Substance: PACLITAXEL
     Indication: PRODUCT USED FOR UNKNOWN INDICATION
     Dosage: UNKNOWN
     Dates: start: 20161219
  32. LENVIMA [Suspect]
     Active Substance: LENVATINIB
     Route: 048
     Dates: start: 20151220, end: 20151224
  33. LENVIMA [Suspect]
     Active Substance: LENVATINIB
     Route: 048
     Dates: start: 20160312, end: 20160317
  34. LENVIMA [Suspect]
     Active Substance: LENVATINIB
     Route: 048
     Dates: start: 20160319, end: 20160323
  35. LENVIMA [Suspect]
     Active Substance: LENVATINIB
     Route: 048
     Dates: start: 20160507, end: 20160512

REACTIONS (2)
  - Malignant neoplasm progression [Fatal]
  - Ulcer [Unknown]

NARRATIVE: CASE EVENT DATE: 20170330
